FAERS Safety Report 6637721-6 (Version None)
Quarter: 2010Q1

REPORT INFORMATION
  Report Type: 
  Country: None (occurrence: None)
  Receive Date: 20100312
  Receipt Date: 20100301
  Transmission Date: 20100710
  Serious: Yes (Hospitalization)
  Sender: FDA-Public Use
  Company Number: 008001

PATIENT
  Sex: Female

DRUGS (1)
  1. CIMZIA [Suspect]
     Indication: CROHN'S DISEASE
     Dosage: 200 MG; 1X/2 WEEKS SUBCUTANEOUS
     Route: 058
     Dates: start: 20090327

REACTIONS (8)
  - ABDOMINAL PAIN UPPER [None]
  - ASTHENIA [None]
  - DEHYDRATION [None]
  - HYPERKALAEMIA [None]
  - HYPOGLYCAEMIA [None]
  - NASOPHARYNGITIS [None]
  - PAIN [None]
  - PAIN IN EXTREMITY [None]
